FAERS Safety Report 5976739-3 (Version None)
Quarter: 2008Q4

REPORT INFORMATION
  Report Type: 
  Country: None (occurrence: None)
  Receive Date: 20081125
  Receipt Date: 20081113
  Transmission Date: 20090506
  Serious: Yes (Hospitalization)
  Sender: FDA-Public Use
  Company Number: 231816K08USA

PATIENT
  Age: 39 Year
  Sex: Female
  Weight: 59 kg

DRUGS (6)
  1. REBIF [Suspect]
     Indication: MULTIPLE SCLEROSIS
     Dosage: 44 MCG, 3 IN 1 WEEKS, SUBCUTANEOUS
     Route: 058
     Dates: start: 20080618, end: 20081030
  2. OXYCODONE HCL [Concomitant]
  3. CYMBALTA [Concomitant]
  4. NEURONTIN [Concomitant]
  5. PROTONIX [Concomitant]
  6. FLOMAX (MORNIFLUMATE) [Concomitant]

REACTIONS (4)
  - ABDOMINAL PAIN UPPER [None]
  - MENINGITIS VIRAL [None]
  - MULTIPLE SCLEROSIS RELAPSE [None]
  - RED BLOOD CELL COUNT DECREASED [None]
